FAERS Safety Report 10036001 (Version 1)
Quarter: 2014Q1

REPORT INFORMATION
  Report Type: Report from Study
  Country: DE (occurrence: DE)
  Receive Date: 20140325
  Receipt Date: 20140325
  Transmission Date: 20141002
  Serious: Yes (Life-Threatening, Hospitalization)
  Sender: FDA-Public Use
  Company Number: DE-TEVA-470496USA

PATIENT
  Age: 64 Year
  Sex: Female

DRUGS (16)
  1. BENDAMUSTINE [Suspect]
     Indication: CHRONIC LYMPHOCYTIC LEUKAEMIA
     Route: 042
  2. OBINUTUZUMAB [Suspect]
  3. INTRATECT [Concomitant]
     Dosage: UNKNOWN/D
     Route: 042
     Dates: start: 20110926
  4. INTRATECT [Concomitant]
     Route: 042
     Dates: start: 20140108
  5. L-THYROXINE                        /00068001/ [Concomitant]
     Route: 048
     Dates: start: 20140108
  6. COTRIM FORTE [Concomitant]
     Dosage: UNKNOWN/D
     Route: 048
     Dates: start: 20140120
  7. FASTURTEC [Concomitant]
     Indication: PROPHYLAXIS
     Dosage: UNKNOWN/D
     Route: 042
     Dates: start: 20140120
  8. TAZOBACTAM [Concomitant]
     Route: 048
     Dates: start: 20140122, end: 20140203
  9. NEULASTA [Concomitant]
     Dosage: UNKNOWN/D
     Route: 058
     Dates: start: 20140123, end: 20140123
  10. NEULASTA [Concomitant]
     Dosage: UNKNOWN/D
     Route: 058
     Dates: start: 20140131, end: 20140131
  11. DIFLUCAN [Concomitant]
     Dosage: UNKNOWN/D
     Route: 065
     Dates: start: 20140219, end: 20140227
  12. CIPROBAY                           /00697201/ [Concomitant]
     Route: 048
     Dates: start: 20140206, end: 20140218
  13. AMLODIPINE [Concomitant]
     Route: 048
     Dates: start: 20140203, end: 20140227
  14. ASS [Concomitant]
     Route: 048
     Dates: start: 20140203
  15. SIMVASTATINE [Concomitant]
     Route: 048
     Dates: start: 20140203
  16. VALSARTAN [Concomitant]
     Route: 048
     Dates: start: 20140108, end: 20140227

REACTIONS (2)
  - C-reactive protein increased [Not Recovered/Not Resolved]
  - Pancytopenia [Not Recovered/Not Resolved]
